FAERS Safety Report 6135547-3 (Version None)
Quarter: 2009Q1

REPORT INFORMATION
  Report Type: 
  Country: None (occurrence: None)
  Receive Date: 20090327
  Receipt Date: 20090325
  Transmission Date: 20090719
  Serious: Yes (Hospitalization)
  Sender: FDA-Public Use
  Company Number: D0060599A

PATIENT
  Sex: Male
  Weight: 78 kg

DRUGS (3)
  1. ELONTRIL [Suspect]
     Indication: DEPRESSION
     Route: 048
     Dates: start: 20081001, end: 20090101
  2. KIVEXA [Concomitant]
     Indication: ANTIRETROVIRAL THERAPY
     Route: 048
     Dates: start: 20071201
  3. KALETRA [Concomitant]
     Indication: ANTIRETROVIRAL THERAPY
     Route: 048
     Dates: start: 20071201

REACTIONS (3)
  - OPTIC NEURITIS [None]
  - VISUAL EVOKED POTENTIALS ABNORMAL [None]
  - VISUAL IMPAIRMENT [None]
